FAERS Safety Report 6899590-9 (Version None)
Quarter: 2010Q3

REPORT INFORMATION
  Report Type: 
  Country: None (occurrence: None)
  Receive Date: 20100729
  Receipt Date: 20100317
  Transmission Date: 20110219
  Serious: Yes (Death, Hospitalization)
  Sender: FDA-Public Use
  Company Number: 2010-US-0016

PATIENT
  Age: 47 Year
  Sex: Female

DRUGS (3)
  1. SANCUSO [Suspect]
     Indication: VOMITING
     Dosage: TRANSDERMAL
     Route: 062
     Dates: start: 20100201, end: 20100101
  2. REGLAN [Concomitant]
  3. ZOFRAN [Concomitant]

REACTIONS (2)
  - BREAST CANCER METASTATIC [None]
  - ONCOLOGIC COMPLICATION [None]
